FAERS Safety Report 7638146-7 (Version None)
Quarter: 2011Q3

REPORT INFORMATION
  Report Type: 
  Country: None (occurrence: None)
  Receive Date: 20110722
  Receipt Date: 20110722
  Transmission Date: 20111222
  Serious: Yes (Hospitalization)
  Sender: FDA-Public Use
  Company Number: None

PATIENT
  Sex: Male
  Weight: 80.9 kg

DRUGS (4)
  1. DEXAMETHASONE [Suspect]
     Dosage: 180 MG
  2. METHOTREXATE [Suspect]
     Dosage: 315 MG
  3. VINCRISTINE SULFATE [Suspect]
     Dosage: 6 MG
  4. MERCAPTOPURINE [Suspect]
     Dosage: 8575 MG

REACTIONS (2)
  - HIP FRACTURE [None]
  - OSTEONECROSIS [None]
